FAERS Safety Report 5484052-6 (Version None)
Quarter: 2007Q4

REPORT INFORMATION
  Report Type: 
  Country: None (occurrence: None)
  Receive Date: 20071009
  Receipt Date: 20071009
  Transmission Date: 20080405
  Serious: No
  Sender: FDA-Public Use
  Company Number: None

PATIENT
  Age: 40 Year
  Sex: Male

DRUGS (1)
  1. FELODIPINE [Suspect]
     Indication: HYPERTENSION
     Dosage: 5MG EVERY DAY PO
     Route: 048
     Dates: start: 20070816, end: 20070906

REACTIONS (4)
  - ANGIOEDEMA [None]
  - ERYTHEMA MULTIFORME [None]
  - FLUSHING [None]
  - PALPITATIONS [None]
